FAERS Safety Report 17300552 (Version 8)
Quarter: 2020Q1

REPORT INFORMATION
  Report Type: Spontaneous
  Country: US (occurrence: US)
  Receive Date: 20200122
  Receipt Date: 20200310
  Transmission Date: 20200409
  Serious: No
  Sender: FDA-Public Use
  Company Number: US-JNJFOC-20200129071

PATIENT
  Age: 89 Year
  Sex: Male
  Weight: 61.29 kg

DRUGS (2)
  1. TREMFYA [Suspect]
     Active Substance: GUSELKUMAB
     Indication: DERMATITIS ATOPIC
     Route: 058
     Dates: start: 201907
  2. TREMFYA [Suspect]
     Active Substance: GUSELKUMAB
     Indication: PSORIASIS
     Route: 058
     Dates: start: 201907

REACTIONS (4)
  - Product dose omission [Unknown]
  - Frustration tolerance decreased [Unknown]
  - Syringe issue [Unknown]
  - Product leakage [Unknown]

NARRATIVE: CASE EVENT DATE: 20200115
